FAERS Safety Report 8780881 (Version 3)
Quarter: 2013Q2

REPORT INFORMATION
  Report Type: Report from Study
  Country: JP (occurrence: JP)
  Receive Date: 20120913
  Receipt Date: 20130524
  Transmission Date: 20140414
  Serious: Yes (Other)
  Sender: FDA-Public Use
  Company Number: JP-009507513-1208JPN009654

PATIENT
  Age: 59 Year
  Sex: Male
  Weight: 87 kg

DRUGS (15)
  1. PEGINTRON [Suspect]
     Indication: CHRONIC HEPATITIS C
     Dosage: 1.5 MICROGRAM PER KILOGRAM, QW
     Route: 058
     Dates: start: 20120530, end: 20120725
  2. PEGINTRON [Suspect]
     Dosage: 1.5 MICROGRAM PER KILOGRAM, QW
     Route: 058
     Dates: start: 20120808
  3. REBETOL [Suspect]
     Indication: CHRONIC HEPATITIS C
     Dosage: 1000 MG, QD
     Route: 048
     Dates: start: 20120530, end: 20120612
  4. REBETOL [Suspect]
     Dosage: 800 MG, QD
     Route: 048
     Dates: start: 20120613, end: 20120620
  5. REBETOL [Suspect]
     Dosage: 600 MG, QD
     Route: 048
     Dates: start: 20120621, end: 20120626
  6. REBETOL [Suspect]
     Dosage: 400 MG, QD
     Route: 048
     Dates: start: 20120627, end: 20120710
  7. REBETOL [Suspect]
     Dosage: 200 MG, QD
     Route: 048
     Dates: start: 20120711, end: 20120801
  8. REBETOL [Suspect]
     Dosage: 200 MG, QD
     Route: 048
     Dates: start: 20120815, end: 20120821
  9. REBETOL [Suspect]
     Dosage: 400 MG, QD
     Route: 048
     Dates: start: 20120822
  10. TELAVIC [Suspect]
     Indication: CHRONIC HEPATITIS C
     Dosage: 2250 MG, QD
     Route: 048
     Dates: start: 20120530, end: 20120801
  11. ALLOPURINOL [Suspect]
     Indication: ADVERSE EVENT
     Dosage: 200 MG, QD
     Route: 048
     Dates: start: 20120601, end: 20120801
  12. GLIMEPIRIDE [Concomitant]
     Indication: DIABETES MELLITUS
     Dosage: 0.5 MG, QD
     Route: 048
     Dates: end: 20120716
  13. GLACTIV [Concomitant]
     Indication: DIABETES MELLITUS
     Dosage: 50 MG, QD
     Route: 048
  14. METGLUCO [Concomitant]
     Indication: DIABETES MELLITUS
     Dosage: 750 MG, QD
     Route: 048
  15. FAMOTIDINE [Concomitant]
     Indication: PROPHYLAXIS
     Dosage: 20 MG, QD
     Route: 048
     Dates: start: 20120801, end: 20120807

REACTIONS (4)
  - Eosinophilia [Recovered/Resolved]
  - Eczema [Recovering/Resolving]
  - Anaemia [Recovered/Resolved]
  - Neutrophil count decreased [Recovered/Resolved]
